APPROVED DRUG PRODUCT: GEMCITABINE HYDROCHLORIDE
Active Ingredient: GEMCITABINE HYDROCHLORIDE
Strength: EQ 2GM BASE/VIAL
Dosage Form/Route: INJECTABLE;INJECTION
Application: A090242 | Product #003 | TE Code: AP
Applicant: FRESENIUS KABI USA LLC
Approved: May 16, 2011 | RLD: No | RS: No | Type: RX